FAERS Safety Report 5977693-0 (Version None)
Quarter: 2008Q4

REPORT INFORMATION
  Report Type: 
  Country: None (occurrence: None)
  Receive Date: 20081203
  Receipt Date: 20081124
  Transmission Date: 20090506
  Serious: Yes (Hospitalization)
  Sender: FDA-Public Use
  Company Number: FR-ROCHE-598859

PATIENT
  Sex: Male

DRUGS (17)
  1. ROCEPHIN [Suspect]
     Indication: DRUG USE FOR UNKNOWN INDICATION
     Dosage: STRENGTH AND DOSE UNKNOWN.
     Route: 042
     Dates: start: 20080909
  2. OFLOXACIN [Suspect]
     Indication: DRUG USE FOR UNKNOWN INDICATION
     Dosage: DOSE UNKNOWN.
     Route: 042
     Dates: start: 20080909
  3. ZOPHREN [Suspect]
     Indication: DRUG USE FOR UNKNOWN INDICATION
     Dosage: DOSE UNKNOWN.
     Route: 042
     Dates: start: 20080909
  4. GRANOCYTE [Suspect]
     Indication: DRUG USE FOR UNKNOWN INDICATION
     Dosage: DOSE UNKNOWN.
     Route: 042
     Dates: start: 20080922
  5. ZAVEDOS [Suspect]
     Indication: DRUG USE FOR UNKNOWN INDICATION
     Dosage: FREQUENCY REPORTED DAY3, 5 AND DAY 7. DOSE REPORTED AS 18MG.
     Route: 042
     Dates: start: 20080909, end: 20080917
  6. ZAVEDOS [Suspect]
     Route: 042
     Dates: start: 20080731
  7. TRISENOX [Suspect]
     Indication: DRUG USE FOR UNKNOWN INDICATION
     Dosage: DOSE AND FREQUENCY 12 MG PER DAY(0.75MG/KG) FROM DAY 1 TO 5.
     Route: 042
     Dates: start: 20080909, end: 20080919
  8. BRICANYL [Concomitant]
  9. SOLU-MEDROL [Concomitant]
  10. PLAVIX [Concomitant]
  11. AMLOD [Concomitant]
  12. TEMERIT [Concomitant]
  13. OMEPRAZOLE [Concomitant]
  14. ZOLEPIDEM [Concomitant]
  15. PRIMPERAN TAB [Concomitant]
     Dosage: AS NEEDED.
  16. ACUPAN [Concomitant]
     Dosage: AS NEEDED.
  17. LOVENOX [Concomitant]
     Dates: start: 20080913

REACTIONS (2)
  - INTERSTITIAL LUNG DISEASE [None]
  - PERICARDIAL EFFUSION [None]
